FAERS Safety Report 7274692-6 (Version None)
Quarter: 2011Q1

REPORT INFORMATION
  Report Type: 
  Country: None (occurrence: None)
  Receive Date: 20110202
  Receipt Date: 20110202
  Transmission Date: 20110831
  Serious: Yes (Death, Other)
  Sender: FDA-Public Use
  Company Number: None

PATIENT
  Age: 81 Year
  Sex: Female

DRUGS (1)
  1. ACTIVASE [Suspect]
     Dosage: 2 MG/HR X 12HRS
     Dates: start: 20101208, end: 20101209

REACTIONS (4)
  - CARDIO-RESPIRATORY ARREST [None]
  - HAEMOPTYSIS [None]
  - HYDROCEPHALUS [None]
  - HAEMORRHAGE INTRACRANIAL [None]
